FAERS Safety Report 6972519-0 (Version None)
Quarter: 2010Q3

REPORT INFORMATION
  Report Type: 
  Country: None (occurrence: None)
  Receive Date: 20100909
  Receipt Date: 20100830
  Transmission Date: 20110219
  Serious: Yes (Other)
  Sender: FDA-Public Use
  Company Number: JP-TYCO HEALTHCARE/MALLINCKRODT-T201001776

PATIENT
  Age: 69 Year
  Sex: Female

DRUGS (1)
  1. OPTIRAY 350 [Suspect]
     Indication: COMPUTERISED TOMOGRAM ABDOMEN
     Dosage: 100 ML, SINGLE
     Dates: start: 20100721, end: 20100721

REACTIONS (5)
  - COUGH [None]
  - DIZZINESS [None]
  - DYSPNOEA [None]
  - OROPHARYNGEAL DISCOMFORT [None]
  - URTICARIA [None]
